FAERS Safety Report 6103471-8 (Version None)
Quarter: 2009Q1

REPORT INFORMATION
  Report Type: 
  Country: None (occurrence: None)
  Receive Date: 20090305
  Receipt Date: 20090225
  Transmission Date: 20090719
  Serious: Yes (Death)
  Sender: FDA-Public Use
  Company Number: US-BAXTER-2009BH003341

PATIENT
  Sex: Female

DRUGS (1)
  1. HEPARIN SODIUM INJECTION [Suspect]
     Indication: MITRAL VALVE REPLACEMENT
     Route: 065
     Dates: start: 20070101, end: 20070101

REACTIONS (1)
  - HEPARIN-INDUCED THROMBOCYTOPENIA [None]
